FAERS Safety Report 8803140 (Version 1)
Quarter: 2012Q4

REPORT INFORMATION
  Report Type: 
  Country: US (occurrence: US)
  Receive Date: 20120924
  Receipt Date: 20120924
  Transmission Date: 20130627
  Serious: Yes (Other)
  Sender: FDA-Public Use
  Company Number: US-JNJFOC-20120504555

PATIENT
  Age: 64 Year
  Sex: Male
  Weight: 96.16 kg

DRUGS (6)
  1. REMICADE [Suspect]
     Indication: COLITIS ULCERATIVE
     Route: 042
     Dates: start: 20120403
  2. REMICADE [Suspect]
     Indication: COLITIS ULCERATIVE
     Route: 042
     Dates: start: 200910
  3. METOPROLOL [Concomitant]
     Indication: HYPERTENSION
     Route: 048
  4. TYLENOL [Concomitant]
     Indication: PREMEDICATION
     Route: 065
  5. BENADRYL [Concomitant]
     Indication: PREMEDICATION
     Route: 065
  6. STEROIDS NOS [Concomitant]
     Indication: PREMEDICATION
     Route: 065

REACTIONS (12)
  - Blood pressure increased [Recovered/Resolved]
  - Infusion related reaction [Recovered/Resolved]
  - Chills [Recovered/Resolved]
  - Hyperhidrosis [Recovered/Resolved]
  - Back pain [Recovered/Resolved]
  - Pain in extremity [Recovered/Resolved]
  - Cold sweat [Recovered/Resolved]
  - Muscle spasms [Recovered/Resolved]
  - Flushing [Recovered/Resolved]
  - Headache [Unknown]
  - Erythema [Recovered/Resolved]
  - Feeling hot [Recovered/Resolved]
